FAERS Safety Report 4809291-6 (Version None)
Quarter: 2005Q4

REPORT INFORMATION
  Report Type: 
  Country: None (occurrence: None)
  Receive Date: 20051021
  Receipt Date: 20051017
  Transmission Date: 20060501
  Serious: Yes (Disabling)
  Sender: FDA-Public Use
  Company Number: 200513519GDS

PATIENT
  Age: 4 Year
  Sex: Female

DRUGS (4)
  1. BUFFERIN [Suspect]
     Indication: KAWASAKI'S DISEASE
     Dosage: ORAL
     Route: 048
     Dates: start: 20050417
  2. INTRAVENOUS IMMUNOGLOBULINS (IMMUNOGLOBULINS) [Suspect]
     Indication: KAWASAKI'S DISEASE
     Dosage: INTRAVENOUS
     Route: 042
     Dates: start: 20050417
  3. ULINASTATIN [Concomitant]
  4. CEFOTAX [Concomitant]

REACTIONS (2)
  - DEAFNESS BILATERAL [None]
  - DEAFNESS NEUROSENSORY [None]
